FAERS Safety Report 24804898 (Version 2)
Quarter: 2025Q2

REPORT INFORMATION
  Report Type: Spontaneous
  Country: US (occurrence: US)
  Receive Date: 20250103
  Receipt Date: 20250428
  Transmission Date: 20250717
  Serious: Yes (Other)
  Sender: PFIZER
  Company Number: US-PFIZER INC-PV202400169174

PATIENT
  Age: 53 Year
  Sex: Male

DRUGS (4)
  1. RITUXIMAB [Suspect]
     Active Substance: RITUXIMAB
     Indication: Cholangitis sclerosing
     Dosage: 375 MG/M2, EVERY 3 MONTHS (700 MG(375 MG/M2))
  2. RITUXIMAB [Suspect]
     Active Substance: RITUXIMAB
  3. RITUXIMAB [Suspect]
     Active Substance: RITUXIMAB
     Dosage: 375 MG/M2, MONTHLY
  4. MYCOPHENOLATE MOFETIL [Suspect]
     Active Substance: MYCOPHENOLATE MOFETIL
     Indication: Cholangitis sclerosing
     Dosage: 1000 MG, 2X/DAY
     Route: 048

REACTIONS (3)
  - Haemangioma of skin [Not Recovered/Not Resolved]
  - Infusion related reaction [Not Recovered/Not Resolved]
  - Off label use [Unknown]
